FAERS Safety Report 8173576-9 (Version None)
Quarter: 2012Q1

REPORT INFORMATION
  Report Type: 
  Country: None (occurrence: None)
  Receive Date: 20120224
  Receipt Date: 20120213
  Transmission Date: 20120608
  Serious: Yes (Other)
  Sender: FDA-Public Use
  Company Number: 2012P1005209

PATIENT
  Sex: Female

DRUGS (2)
  1. VANCOMYCIN [Suspect]
  2. PIPERACILLIN AND TAZOBACTAM [Suspect]

REACTIONS (1)
  - LINEAR IGA DISEASE [None]
